FAERS Safety Report 6092943-0 (Version None)
Quarter: 2009Q1

REPORT INFORMATION
  Report Type: 
  Country: None (occurrence: None)
  Receive Date: 20090223
  Receipt Date: 20090209
  Transmission Date: 20090719
  Serious: Yes (Other)
  Sender: FDA-Public Use
  Company Number: 1000004838

PATIENT
  Sex: Female

DRUGS (5)
  1. CITALOPRAM HYDROBROMIDE [Suspect]
  2. PAROXETINE HCL [Suspect]
     Dosage: 20 MG (20 MG, 1 IN 1 D), ORAL; 30 MG (30 MG, 1 IN 1 D), ORAL; 15 MG (15 MG, 1 IN 1 D), ORAL
     Route: 046
     Dates: end: 20010101
  3. PAROXETINE HCL [Suspect]
     Dosage: 20 MG (20 MG, 1 IN 1 D), ORAL; 30 MG (30 MG, 1 IN 1 D), ORAL; 15 MG (15 MG, 1 IN 1 D), ORAL
     Route: 046
     Dates: start: 20010101, end: 20011101
  4. PAROXETINE HCL [Suspect]
     Dosage: 20 MG (20 MG, 1 IN 1 D), ORAL; 30 MG (30 MG, 1 IN 1 D), ORAL; 15 MG (15 MG, 1 IN 1 D), ORAL
     Route: 046
     Dates: start: 20011101, end: 20020201
  5. VENLAFAXINE HCL [Concomitant]

REACTIONS (10)
  - ABORTION INDUCED [None]
  - APATHY [None]
  - APPETITE DISORDER [None]
  - DRUG EXPOSURE DURING PREGNANCY [None]
  - DRUG WITHDRAWAL SYNDROME [None]
  - EMOTIONAL DISTRESS [None]
  - IRRITABILITY [None]
  - OVERDOSE [None]
  - TEARFULNESS [None]
  - WEIGHT FLUCTUATION [None]
